FAERS Safety Report 15113413 (Version 1)
Quarter: 2018Q3

REPORT INFORMATION
  Report Type: Report from Study
  Country: IT (occurrence: IT)
  Receive Date: 20180706
  Receipt Date: 20180706
  Transmission Date: 20181010
  Serious: Yes (Hospitalization)
  Sender: FDA-Public Use
  Company Number: IT-TEVA-2018-IT-921015

PATIENT
  Age: 26 Year
  Sex: Male

DRUGS (7)
  1. MYFENAX [Suspect]
     Active Substance: MYCOPHENOLATE MOFETIL
     Indication: ENCEPHALITIS AUTOIMMUNE
     Dosage: 1500 MILLIGRAM DAILY;
     Route: 048
     Dates: start: 20170901, end: 20180419
  2. VIMPAT 50 MG FILM?COATED TABLETS [Concomitant]
  3. DELTACORTENE 25 MG COMPRESSE [Suspect]
     Active Substance: PREDNISONE
     Indication: ENCEPHALITIS AUTOIMMUNE
     Dosage: 100 MILLIGRAM DAILY;
     Route: 048
     Dates: start: 20170901, end: 20180419
  4. DIAZEPAM. [Concomitant]
     Active Substance: DIAZEPAM
     Route: 065
  5. TEGRETOL 400 MG COMPRESSE [Concomitant]
  6. DIBASE 10.000 U.I./ML GOCCE ORALI, SOLUZIONE [Concomitant]
     Active Substance: CHOLECALCIFEROL
  7. OMEPRAZOLE. [Concomitant]
     Active Substance: OMEPRAZOLE
     Route: 065

REACTIONS (2)
  - Stomatitis [Recovered/Resolved]
  - Staphylococcal sepsis [Recovered/Resolved]

NARRATIVE: CASE EVENT DATE: 20180419
